FAERS Safety Report 17557194 (Version 2)
Quarter: 2020Q4

REPORT INFORMATION
  Report Type: Spontaneous
  Country: US (occurrence: US)
  Receive Date: 20200318
  Receipt Date: 20201215
  Transmission Date: 20210113
  Serious: No
  Sender: FDA-Public Use
  Company Number: US-GLOBAL BLOOD THERAPEUTICS INC-US-GBT-20-00134

PATIENT
  Age: 13 Year
  Sex: Female

DRUGS (3)
  1. TYLENOL [Concomitant]
     Active Substance: ACETAMINOPHEN
     Indication: HEADACHE
  2. HYDROXYUREA. [Concomitant]
     Active Substance: HYDROXYUREA
     Indication: PRODUCT USED FOR UNKNOWN INDICATION
  3. OXBRYTA [Suspect]
     Active Substance: VOXELOTOR
     Indication: SICKLE CELL DISEASE
     Route: 048
     Dates: start: 202001

REACTIONS (2)
  - Headache [Unknown]
  - Headache [Unknown]

NARRATIVE: CASE EVENT DATE: 202001
